FAERS Safety Report 19058387 (Version 1)
Quarter: 2021Q1

REPORT INFORMATION
  Report Type: Spontaneous
  Country: AR (occurrence: AR)
  Receive Date: 20210324
  Receipt Date: 20210324
  Transmission Date: 20210420
  Serious: Yes (Hospitalization, Other)
  Sender: FDA-Public Use
  Company Number: AR-AMGEN-ARGSP2021044535

PATIENT
  Age: 83 Year
  Sex: Female

DRUGS (1)
  1. ENBREL [Suspect]
     Active Substance: ETANERCEPT
     Indication: PSORIASIS
     Dosage: 50 MG, WEEKLY
     Route: 065
     Dates: start: 20090707

REACTIONS (5)
  - Agitation [Unknown]
  - Intentional product misuse [Not Recovered/Not Resolved]
  - Pleural effusion [Not Recovered/Not Resolved]
  - Breast mass [Not Recovered/Not Resolved]
  - Myopia [Unknown]

NARRATIVE: CASE EVENT DATE: 20210210
